FAERS Safety Report 6200037-6 (Version None)
Quarter: 2009Q2

REPORT INFORMATION
  Report Type: 
  Country: None (occurrence: None)
  Receive Date: 20090522
  Receipt Date: 20090512
  Transmission Date: 20091009
  Serious: Yes (Other)
  Sender: FDA-Public Use
  Company Number: US-MERCK-0902USA01621

PATIENT
  Age: 62 Year
  Sex: Female
  Weight: 61 kg

DRUGS (2)
  1. FOSAMAX [Suspect]
     Indication: OSTEOPOROSIS
     Route: 048
     Dates: start: 20010525, end: 20061130
  2. FOSAMAX PLUS D [Suspect]
     Indication: OSTEOPOROSIS
     Route: 048
     Dates: start: 20070404, end: 20071008

REACTIONS (13)
  - BRONCHITIS [None]
  - COLON ADENOMA [None]
  - COLONIC POLYP [None]
  - EMPHYSEMA [None]
  - FAILURE OF IMPLANT [None]
  - HAEMATURIA [None]
  - HERPES ZOSTER [None]
  - HYPERCHOLESTEROLAEMIA [None]
  - HYPOACUSIS [None]
  - NODULE [None]
  - RESORPTION BONE INCREASED [None]
  - SUBCUTANEOUS ABSCESS [None]
  - VERTIGO [None]
